FAERS Safety Report 10416506 (Version 2)
Quarter: 2014Q4

REPORT INFORMATION
  Report Type: Spontaneous
  Country: US (occurrence: US)
  Receive Date: 20140828
  Receipt Date: 20141203
  Transmission Date: 20150528
  Serious: Yes (Death, Hospitalization, Other)
  Sender: FDA-Public Use
  Company Number: US-GLAXOSMITHKLINE-A1085932A

PATIENT
  Sex: Male

DRUGS (18)
  1. ASPIRIN. [Concomitant]
     Active Substance: ASPIRIN
  2. LISINOPRIL. [Concomitant]
     Active Substance: LISINOPRIL
  3. LOVASTATIN. [Concomitant]
     Active Substance: LOVASTATIN
  4. MORPHINE [Concomitant]
     Active Substance: MORPHINE
  5. LANTUS [Concomitant]
     Active Substance: INSULIN GLARGINE
  6. PROCARDIA [Concomitant]
     Active Substance: NIFEDIPINE
  7. VITAMIN C [Concomitant]
     Active Substance: ASCORBIC ACID
  8. TRAMADOL [Concomitant]
     Active Substance: TRAMADOL
  9. VOTRIENT [Suspect]
     Active Substance: PAZOPANIB HYDROCHLORIDE
     Dosage: 2 DF, QD
     Route: 048
  10. VOTRIENT [Suspect]
     Active Substance: PAZOPANIB HYDROCHLORIDE
     Indication: RENAL CELL CARCINOMA
     Dosage: 4 DF, QD
     Route: 048
     Dates: start: 20140410
  11. GLUCONATE [Concomitant]
     Active Substance: GLUCONATE
  12. NITROGLYCERIN. [Concomitant]
     Active Substance: NITROGLYCERIN
  13. ATENOLOL. [Concomitant]
     Active Substance: ATENOLOL
  14. NOVOLOG [Concomitant]
     Active Substance: INSULIN ASPART
  15. PROTONIX [Concomitant]
     Active Substance: PANTOPRAZOLE SODIUM
  16. FUROSEMIDE. [Concomitant]
     Active Substance: FUROSEMIDE
  17. VOTRIENT [Suspect]
     Active Substance: PAZOPANIB HYDROCHLORIDE
     Dosage: 1 DF, QD
     Route: 048
  18. CALCIUM CARBONATE. [Concomitant]
     Active Substance: CALCIUM CARBONATE

REACTIONS (13)
  - Productive cough [Unknown]
  - Feeling abnormal [Unknown]
  - Proctalgia [Unknown]
  - Retching [Unknown]
  - Blood glucose decreased [Unknown]
  - Fatigue [Unknown]
  - Haematemesis [Unknown]
  - Cardiac assistance device user [Unknown]
  - Dysphonia [Unknown]
  - Dehydration [Unknown]
  - Oropharyngeal pain [Unknown]
  - Death [Fatal]
  - Diarrhoea [Unknown]
